FAERS Safety Report 8100370-7 (Version None)
Quarter: 2012Q1

REPORT INFORMATION
  Report Type: 
  Country: None (occurrence: None)
  Receive Date: 20120129
  Receipt Date: 20111127
  Transmission Date: 20120608
  Serious: No
  Sender: FDA-Public Use
  Company Number: US-ABBOTT-11P-163-0877996-00

PATIENT
  Age: 46 Year
  Sex: Female

DRUGS (11)
  1. VICODIN [Concomitant]
     Indication: PAIN
     Dosage: 10/325 AS NEEDED
  2. FLEXERIL [Concomitant]
     Indication: MUSCLE SPASMS
  3. OMEPRAZOLE [Concomitant]
     Indication: PROPHYLAXIS
  4. MOTRIN [Concomitant]
     Indication: ANKYLOSING SPONDYLITIS
  5. MOTRIN [Concomitant]
     Indication: ARTHRALGIA
  6. CALIUM [Concomitant]
     Indication: SUPPLEMENTATION THERAPY
  7. OMEPRAZOLE [Concomitant]
     Indication: GASTRIC DISORDER
  8. ETODOLAC [Concomitant]
     Indication: ARTHRALGIA
  9. HUMIRA [Suspect]
     Indication: ANKYLOSING SPONDYLITIS
     Dates: start: 20111001
  10. PROZAC [Concomitant]
     Indication: DEPRESSION
  11. VITAMIN D [Concomitant]
     Indication: VITAMIN SUPPLEMENTATION
     Dosage: WEEKLY

REACTIONS (6)
  - PAIN [None]
  - ABDOMINAL DISTENSION [None]
  - ARTHRALGIA [None]
  - ABDOMINAL PAIN [None]
  - MUSCLE SPASMS [None]
  - GRIP STRENGTH DECREASED [None]
